FAERS Safety Report 11459967 (Version 2)
Quarter: 2015Q3

REPORT INFORMATION
  Report Type: Spontaneous
  Country: US (occurrence: US)
  Receive Date: 20150904
  Receipt Date: 20150925
  Transmission Date: 20151125
  Serious: Yes (Hospitalization, Other)
  Sender: FDA-Public Use
  Company Number: US-PFIZER INC-2015286714

PATIENT
  Age: 88 Year
  Sex: Female
  Weight: 63.27 kg

DRUGS (4)
  1. LYRICA [Suspect]
     Active Substance: PREGABALIN
     Indication: ARTHRITIS
     Dosage: 75 MG, 2X/DAY
     Route: 048
  2. CARBIDOPA-LEVODOPA [Suspect]
     Active Substance: CARBIDOPA\LEVODOPA
     Dosage: 75 MG, 3X/DAY
     Route: 048
     Dates: start: 20150422
  3. LYRICA [Suspect]
     Active Substance: PREGABALIN
     Dosage: 100 MG, 2X/DAY
     Route: 048
     Dates: start: 20150422
  4. CARBIDOPA-LEVODOPA [Suspect]
     Active Substance: CARBIDOPA\LEVODOPA
     Indication: PARKINSON^S DISEASE
     Dosage: [CARBIDOPA-50MG, LEVODOPA-200 MG]
     Route: 048

REACTIONS (8)
  - Gait disturbance [Unknown]
  - Product use issue [Unknown]
  - Slow response to stimuli [Unknown]
  - Condition aggravated [Unknown]
  - Fatigue [Unknown]
  - Dizziness [Unknown]
  - Chest pain [Unknown]
  - Parkinson^s disease [Unknown]

NARRATIVE: CASE EVENT DATE: 20150310
